FAERS Safety Report 25001802 (Version 2)
Quarter: 2025Q1

REPORT INFORMATION
  Report Type: Spontaneous
  Country: SA (occurrence: SA)
  Receive Date: 20250224
  Receipt Date: 20250304
  Transmission Date: 20250408
  Serious: Yes (Hospitalization, Other)
  Sender: AJANTA PHARMA USA INC
  Company Number: SA-AJANTA-2025AJA00019

PATIENT
  Age: 31 Year
  Sex: Male

DRUGS (3)
  1. PALIPERIDONE [Suspect]
     Active Substance: PALIPERIDONE
     Indication: Schizophrenia
  2. PALIPERIDONE [Suspect]
     Active Substance: PALIPERIDONE
  3. PALIPERIDONE [Suspect]
     Active Substance: PALIPERIDONE

REACTIONS (1)
  - Hypothyroidism [Recovered/Resolved]
